FAERS Safety Report 6805388-X (Version None)
Quarter: 2010Q2

REPORT INFORMATION
  Report Type: 
  Country: None (occurrence: None)
  Receive Date: 20100628
  Receipt Date: 20071215
  Transmission Date: 20101027
  Serious: No
  Sender: FDA-Public Use
  Company Number: US-PFIZER INC-2007080226

PATIENT
  Sex: Female
  Weight: 47.63 kg

DRUGS (3)
  1. GEODON [Suspect]
     Indication: DEPRESSION
     Route: 048
     Dates: start: 20070901
  2. GEODON [Suspect]
     Indication: ANXIETY DISORDER
  3. PROZAC [Concomitant]
     Route: 048

REACTIONS (1)
  - MENORRHAGIA [None]
